FAERS Safety Report 5091344-1 (Version None)
Quarter: 2006Q3

REPORT INFORMATION
  Report Type: 
  Country: None (occurrence: None)
  Receive Date: 20060824
  Receipt Date: 20060810
  Transmission Date: 20061208
  Serious: Yes (Hospitalization)
  Sender: FDA-Public Use
  Company Number: CLOF-10313

PATIENT
  Sex: Male

DRUGS (7)
  1. CLOFARABINE [Suspect]
     Indication: ACUTE MYELOID LEUKAEMIA
     Dates: start: 20040821, end: 20040825
  2. CLOFARABINE [Suspect]
     Indication: ACUTE MYELOID LEUKAEMIA
     Dates: start: 20040101, end: 20040101
  3. CLOFARABINE [Suspect]
     Indication: ACUTE MYELOID LEUKAEMIA
     Dates: start: 20040101, end: 20040101
  4. CYTOSINE ARABINOSIDE [Suspect]
     Indication: ACUTE MYELOID LEUKAEMIA
     Dates: start: 20040821, end: 20040826
  5. CYTOSINE ARABINOSIDE [Suspect]
     Indication: ACUTE MYELOID LEUKAEMIA
     Dates: start: 20040101, end: 20040101
  6. CYTOSINE ARABINOSIDE [Suspect]
     Indication: ACUTE MYELOID LEUKAEMIA
     Dates: start: 20040101, end: 20040101
  7. ABELCET [Suspect]
     Indication: PNEUMONIA

REACTIONS (5)
  - BLOOD CREATININE ABNORMAL [None]
  - CENTRAL LINE INFECTION [None]
  - FEBRILE NEUTROPENIA [None]
  - PNEUMONIA [None]
  - PURULENT DISCHARGE [None]
